FAERS Safety Report 9008925 (Version 2)
Quarter: 2013Q1

REPORT INFORMATION
  Report Type: Spontaneous
  Country: US (occurrence: US)
  Receive Date: 20130111
  Receipt Date: 20130325
  Transmission Date: 20140127
  Serious: Yes (Death)
  Sender: FDA-Public Use
  Company Number: US-PFIZER INC-2013004636

PATIENT
  Age: 60 Year
  Sex: Female

DRUGS (13)
  1. AMLODIPINE BESILATE [Suspect]
     Dosage: UNK
  2. OXYCODONE HYDROCHLORIDE [Suspect]
     Dosage: UNK
  3. HYDROCHLOROTHIAZIDE [Suspect]
     Dosage: UNK
  4. SUMATRIPTAN SUCCINATE [Suspect]
     Dosage: UNK
  5. FLUOXETINE HYDROCHLORIDE [Suspect]
     Dosage: UNK
  6. ZOLPIDEM TARTRATE [Suspect]
     Dosage: UNK
  7. TIZANIDINE [Suspect]
     Dosage: UNK
     Route: 048
  8. ARIPIPRAZOLE [Suspect]
     Dosage: UNK
  9. HYOSCYAMINE [Suspect]
     Dosage: UNK
  10. AMITRIPTYLINE [Suspect]
     Dosage: UNK
  11. HYDROCODONE [Suspect]
     Dosage: UNK
  12. SIMVASTATIN [Suspect]
     Dosage: UNK
  13. ACETAMINOPHEN [Suspect]
     Dosage: UNK

REACTIONS (4)
  - Completed suicide [Fatal]
  - Cardiac arrest [Fatal]
  - Respiratory arrest [Fatal]
  - Toxicity to various agents [None]
